FAERS Safety Report 22276234 (Version 3)
Quarter: 2023Q2

REPORT INFORMATION
  Report Type: Spontaneous
  Country: US (occurrence: US)
  Receive Date: 20230502
  Receipt Date: 20230509
  Transmission Date: 20230721
  Serious: Yes (Other)
  Sender: FDA-Public Use
  Company Number: US-NOVEN PHARMACEUTICALS, INC.-2023-NOV-US000439

PATIENT
  Age: 11 Year
  Sex: Female
  Weight: 49.433 kg

DRUGS (1)
  1. DAYTRANA [Suspect]
     Active Substance: METHYLPHENIDATE
     Indication: Attention deficit hyperactivity disorder
     Dosage: 10 MG/9 HOURS, ONE PATCH DAILY
     Route: 062
     Dates: start: 20230428

REACTIONS (5)
  - Device difficult to use [Recovered/Resolved]
  - Device adhesion issue [Recovered/Resolved]
  - Application site erythema [Not Recovered/Not Resolved]
  - Product administration error [Recovered/Resolved]
  - Recalled product administered [Not Recovered/Not Resolved]

NARRATIVE: CASE EVENT DATE: 20230428
